FAERS Safety Report 25589836 (Version 1)
Quarter: 2025Q3

REPORT INFORMATION
  Report Type: Spontaneous
  Country: AU (occurrence: AU)
  Receive Date: 20250722
  Receipt Date: 20250722
  Transmission Date: 20251021
  Serious: Yes (Hospitalization, Other)
  Sender: SANDOZ
  Company Number: AU-002147023-PHHO2019AU001700

PATIENT
  Age: 58 Year
  Sex: Female

DRUGS (17)
  1. CYCLOPHOSPHAMIDE [Suspect]
     Active Substance: CYCLOPHOSPHAMIDE
     Indication: Chemotherapy
     Route: 065
     Dates: start: 20190130, end: 20190201
  2. FLUDARABINE PHOSPHATE [Suspect]
     Active Substance: FLUDARABINE PHOSPHATE
     Indication: Chemotherapy
     Route: 065
     Dates: start: 20190130, end: 20190201
  3. TISAGENLECLEUCEL [Suspect]
     Active Substance: TISAGENLECLEUCEL
     Route: 042
     Dates: start: 20190206, end: 20190206
  4. TISAGENLECLEUCEL [Suspect]
     Active Substance: TISAGENLECLEUCEL
     Indication: Follicular lymphoma refractory
     Route: 065
  5. ALLOPURINOL [Concomitant]
     Active Substance: ALLOPURINOL
     Indication: Prophylaxis
     Route: 065
     Dates: start: 20190130, end: 20190212
  6. BUTYLSCOPOLAMINE BROMIDE [Concomitant]
     Active Substance: BUTYLSCOPOLAMINE BROMIDE
     Indication: Nausea
     Route: 065
  7. BUTYLSCOPOLAMINE BROMIDE [Concomitant]
     Active Substance: BUTYLSCOPOLAMINE BROMIDE
     Indication: Vomiting
     Route: 065
     Dates: start: 20190206, end: 20190206
  8. MAGNESIUM ASPARTATE [Concomitant]
     Active Substance: MAGNESIUM ASPARTATE
     Indication: Product used for unknown indication
     Route: 065
  9. MAGNESIUM ASPARTATE DIHYDRATE [Concomitant]
     Active Substance: MAGNESIUM ASPARTATE DIHYDRATE
     Indication: Hypomagnesaemia
     Route: 065
     Dates: start: 20190206, end: 20190206
  10. METOCLOPRAMIDE [Concomitant]
     Active Substance: METOCLOPRAMIDE
     Indication: Nausea
     Route: 065
  11. METOCLOPRAMIDE [Concomitant]
     Active Substance: METOCLOPRAMIDE
     Indication: Vomiting
     Route: 065
     Dates: start: 20190206, end: 20190208
  12. MIDODRINE [Concomitant]
     Active Substance: MIDODRINE
     Indication: Infusion related reaction
     Route: 065
  13. ONDANSETRON [Concomitant]
     Active Substance: ONDANSETRON
     Indication: Nausea
     Route: 065
  14. ONDANSETRON [Concomitant]
     Active Substance: ONDANSETRON
     Indication: Vomiting
     Route: 065
     Dates: start: 20190206, end: 20190208
  15. POTASSIUM CHLORIDE [Concomitant]
     Active Substance: POTASSIUM CHLORIDE
     Indication: Diarrhoea
     Route: 065
     Dates: start: 20190206, end: 20190206
  16. SULFAMETHOXAZOLE AND TRIMETHOPRIM [Concomitant]
     Active Substance: SULFAMETHOXAZOLE\TRIMETHOPRIM
     Indication: Prophylaxis
     Route: 065
     Dates: start: 20190130, end: 20190302
  17. VALACYCLOVIR HYDROCHLORIDE [Concomitant]
     Active Substance: VALACYCLOVIR HYDROCHLORIDE
     Indication: Antiviral prophylaxis
     Route: 065
     Dates: start: 20190130, end: 20190302

REACTIONS (1)
  - Infusion related reaction [Recovered/Resolved]

NARRATIVE: CASE EVENT DATE: 20190206
